FAERS Safety Report 7081045-2 (Version None)
Quarter: 2010Q4

REPORT INFORMATION
  Report Type: 
  Country: None (occurrence: None)
  Receive Date: 20101103
  Receipt Date: 20101026
  Transmission Date: 20110411
  Serious: Yes (Life-Threatening, Hospitalization, Disabling)
  Sender: FDA-Public Use
  Company Number: FR-ROCHE-606724

PATIENT
  Sex: Female
  Weight: 48 kg

DRUGS (21)
  1. ENFUVIRTIDE [Suspect]
     Indication: HIV INFECTION
     Route: 058
     Dates: start: 20081114
  2. SUSTIVA [Suspect]
     Indication: HIV INFECTION
     Dosage: REPORTED DRUG: SUSTIVA 600 MG
     Route: 065
     Dates: start: 20081114
  3. TRUVADA [Suspect]
     Indication: HIV INFECTION
     Route: 048
     Dates: start: 20081114
  4. RIFATER [Suspect]
     Indication: HIV INFECTION
     Route: 065
     Dates: start: 20081114
  5. MYAMBUTOL [Suspect]
     Indication: HIV INFECTION
     Route: 065
     Dates: start: 20081114
  6. BACTRIM [Concomitant]
     Dates: start: 20081106
  7. SPECIAFOLDINE [Concomitant]
     Dates: start: 20081106
  8. SOLU-MEDROL [Concomitant]
     Dates: start: 20081201
  9. SOLUPRED [Concomitant]
     Dates: start: 20081201
  10. RIFADIN [Concomitant]
     Dosage: DRUG NAME REPORTED AS RIDINE 600.
     Dates: start: 20081114
  11. RIFADIN [Concomitant]
     Dates: start: 20090328
  12. MYAMBUTOL [Concomitant]
     Route: 065
     Dates: start: 20081114
  13. NEXIUM [Concomitant]
     Route: 065
  14. NEURONTIN [Concomitant]
     Route: 065
     Dates: start: 20081119
  15. PIRILENE [Concomitant]
     Dosage: DRUG NAME REPORTED AS PIRILENE
     Dates: start: 20090206
  16. RIMIFON [Concomitant]
     Dates: start: 20090328, end: 20091221
  17. AMITRIPTYLINE HCL [Concomitant]
  18. DURAGESIC-100 [Concomitant]
  19. ERYTHROMYCINE [Concomitant]
  20. SANDOSTATIN [Concomitant]
  21. RIBAVIRIN [Concomitant]
     Dates: end: 20091221

REACTIONS (3)
  - GENERAL PHYSICAL HEALTH DETERIORATION [None]
  - IMPAIRED GASTRIC EMPTYING [None]
  - PYREXIA [None]
